FAERS Safety Report 5273526-9 (Version None)
Quarter: 2007Q1

REPORT INFORMATION
  Report Type: 
  Country: None (occurrence: None)
  Receive Date: 20061219
  Receipt Date: 20060831
  Transmission Date: 20070707
  Serious: Yes (Hospitalization)
  Sender: FDA-Public Use
  Company Number: US-JNJFOC-20060106040

PATIENT
  Age: 26 Year
  Sex: Female
  Weight: 61.6892 kg

DRUGS (4)
  1. ORTHO EVRA [Suspect]
     Indication: CONTRACEPTION
     Dosage: TRANSDERMAL
     Route: 062
     Dates: start: 20050201, end: 20050405
  2. CLARINEX [Concomitant]
  3. IBUPROFEN [Concomitant]
  4. NUVA RING (ALL OTHER THERAPEUTIC PRODUCTS) [Concomitant]

REACTIONS (5)
  - BLOOD PRESSURE INCREASED [None]
  - DERMATITIS ALLERGIC [None]
  - HEADACHE [None]
  - PALPITATIONS [None]
  - PHLEBITIS SUPERFICIAL [None]
